FAERS Safety Report 6684410-8 (Version None)
Quarter: 2010Q2

REPORT INFORMATION
  Report Type: 
  Country: None (occurrence: None)
  Receive Date: 20100416
  Receipt Date: 20100407
  Transmission Date: 20101027
  Serious: Yes (Death)
  Sender: FDA-Public Use
  Company Number: US-BRACCO-004006

PATIENT
  Sex: Male

DRUGS (18)
  1. ISOVUE-128 [Suspect]
     Indication: COMPUTERISED TOMOGRAM
     Route: 042
     Dates: start: 20100125, end: 20100125
  2. NITROGLYCERIN [Concomitant]
     Dosage: AS NEEDED
     Route: 060
  3. COMBIVENT [Concomitant]
     Dosage: 2 PUFFS EVERY 6 HOURS
     Route: 055
  4. IRON [Concomitant]
  5. LASIX [Concomitant]
     Route: 065
  6. CYMBALTA [Concomitant]
     Dosage: TAKEN AT BEDTIME
     Route: 065
  7. PROTONIX [Concomitant]
  8. TRICOR [Concomitant]
     Dosage: TAKEN AT BEDTIME
     Route: 065
  9. ASPIRIN [Concomitant]
     Route: 065
  10. FLOMAX [Concomitant]
     Dosage: TAKEN AT BEDTIME
     Route: 065
  11. ISOVUE-128 [Concomitant]
     Indication: ANGIOGRAM PULMONARY
     Route: 042
     Dates: start: 20100101, end: 20100101
  12. LIPITOR [Concomitant]
  13. ATENOLOL [Concomitant]
     Route: 065
  14. SPIRIVA [Concomitant]
  15. BENADRYL [Concomitant]
     Route: 065
     Dates: start: 20100125, end: 20100125
  16. PREDNISONE [Concomitant]
     Dates: start: 20100125, end: 20100125
  17. PREDNISONE [Concomitant]
     Dates: start: 20100125, end: 20100125
  18. PREDNISONE [Concomitant]
     Dates: start: 20100125, end: 20100125

REACTIONS (1)
  - CARDIO-RESPIRATORY ARREST [None]
